FAERS Safety Report 15256080 (Version 2)
Quarter: 2018Q4

REPORT INFORMATION
  Report Type: Spontaneous
  Country: KR (occurrence: KR)
  Receive Date: 20180808
  Receipt Date: 20180815
  Transmission Date: 20190204
  Serious: Yes (Other)
  Sender: FDA-Public Use
  Company Number: KR-PFIZER INC-2018311878

PATIENT
  Age: 37 Year
  Sex: Female

DRUGS (5)
  1. THIAMINE NITRATE [Concomitant]
     Dosage: UNK
  2. PYRIDOXINE HYDROCHLORIDE. [Concomitant]
     Active Substance: PYRIDOXINE HYDROCHLORIDE
     Dosage: UNK
  3. TOCOPHEROL ACETATE [Concomitant]
     Active Substance: .ALPHA.-TOCOPHEROL ACETATE
     Dosage: UNK
  4. VIBRAMYCIN-N [Suspect]
     Active Substance: DOXYCYCLINE HYDROCHLORIDE
     Dosage: 1 DF, 2X/DAY (1 TABLET TWICE DAILY, ONE TIME ADMINISTRATION)
     Route: 048
  5. MAG-B [Concomitant]
     Dosage: UNK

REACTIONS (3)
  - Erythema [Unknown]
  - Haematemesis [Recovered/Resolved]
  - Pyrexia [Unknown]

NARRATIVE: CASE EVENT DATE: 20180801
